FAERS Safety Report 9784512 (Version 2)
Quarter: 2014Q1

REPORT INFORMATION
  Report Type: Spontaneous
  Country: FR (occurrence: FR)
  Receive Date: 20131226
  Receipt Date: 20140107
  Transmission Date: 20141002
  Serious: Yes (Life-Threatening)
  Sender: FDA-Public Use
  Company Number: FR-B.I. PHARMACEUTICALS,INC./RIDGEFIELD-2013-BI-43676YA

PATIENT
  Age: 90 Year
  Sex: Male

DRUGS (10)
  1. TAMSULOSINA [Suspect]
     Dosage: FORMULATION: ORODISPERSIBLE CR TABLET
     Route: 065
     Dates: start: 20131120
  2. OMEPRAZOLE [Suspect]
     Route: 065
     Dates: start: 20131109
  3. OXYBUTYNIN HYDROCHLORIDE [Suspect]
     Route: 065
     Dates: start: 20131109
  4. BETAMETHASONE SODIUM PHOSPHATE [Suspect]
     Route: 065
     Dates: start: 20131113
  5. DAIVOBET [Suspect]
     Route: 065
     Dates: start: 20131113
  6. DESLORATADINE [Suspect]
     Route: 065
     Dates: start: 20131113
  7. AZITHROMYCIN [Suspect]
     Route: 065
     Dates: start: 20131127
  8. AMLOR (AMLODIPINE BESILATE) [Concomitant]
     Route: 065
     Dates: start: 20131109
  9. KARDEGIC (ACETYLSALICYLATE LYSINE) [Concomitant]
     Route: 065
     Dates: start: 20131109
  10. ATENOLOL (ATENOLOL) [Concomitant]
     Route: 065
     Dates: start: 20131109

REACTIONS (1)
  - Agranulocytosis [Not Recovered/Not Resolved]
